FAERS Safety Report 24888225 (Version 1)
Quarter: 2025Q1

REPORT INFORMATION
  Report Type: Spontaneous
  Country: US (occurrence: None)
  Receive Date: 20250127
  Receipt Date: 20250127
  Transmission Date: 20250409
  Serious: No
  Sender: UNICHEM
  Company Number: US-ARIS GLOBAL-UCM202409-001122

PATIENT
  Age: 53 Year
  Sex: Male
  Weight: 117.93 kg

DRUGS (1)
  1. MELOXICAM [Suspect]
     Active Substance: MELOXICAM
     Indication: Back pain
     Dates: start: 202408

REACTIONS (1)
  - Drug ineffective [Unknown]

NARRATIVE: CASE EVENT DATE: 20240901
